FAERS Safety Report 5812753-6 (Version None)
Quarter: 2008Q3

REPORT INFORMATION
  Report Type: 
  Country: None (occurrence: None)
  Receive Date: 20080714
  Receipt Date: 20080714
  Transmission Date: 20090109
  Serious: Yes (Hospitalization)
  Sender: FDA-Public Use
  Company Number: None

PATIENT
  Sex: Male
  Weight: 92 kg

DRUGS (3)
  1. ERBITUX [Suspect]
     Dosage: 550 MG
  2. LEUCOVORIN CALCIUM [Suspect]
     Dosage: 880 MG
  3. ELOXATIN [Suspect]
     Dosage: 39 MG

REACTIONS (1)
  - PULMONARY EMBOLISM [None]
